FAERS Safety Report 9024294 (Version 3)
Quarter: 2013Q2

REPORT INFORMATION
  Report Type: Spontaneous
  Country: IT (occurrence: IT)
  Receive Date: 20130121
  Receipt Date: 20130423
  Transmission Date: 20140414
  Serious: Yes (Other)
  Sender: FDA-Public Use
  Company Number: PHHY2013IT004844

PATIENT
  Sex: Male

DRUGS (3)
  1. ZOMETA [Suspect]
     Indication: PROSTATE CANCER STAGE IV
     Dosage: 4 MG, MONTHLY
     Dates: start: 20100101, end: 20120201
  2. DELTACORTENE [Concomitant]
     Indication: PROSTATE CANCER STAGE IV
     Dosage: 25 MG, UNK
     Dates: start: 20110401, end: 20110801
  3. DELTACORTENE [Concomitant]
     Dosage: 5 MG, UNK
     Dates: start: 20110801

REACTIONS (3)
  - Osteonecrosis of jaw [Not Recovered/Not Resolved]
  - Exposed bone in jaw [Not Recovered/Not Resolved]
  - Pain [Not Recovered/Not Resolved]
